FAERS Safety Report 8877076 (Version 1)
Quarter: 2012Q4

REPORT INFORMATION
  Report Type: 
  Country: CH (occurrence: CH)
  Receive Date: 20121029
  Receipt Date: 20121029
  Transmission Date: 20130627
  Serious: Yes (Hospitalization, Other)
  Sender: FDA-Public Use
  Company Number: CH-PFIZER INC-2012265218

PATIENT
  Age: 39 Year
  Sex: Female

DRUGS (4)
  1. VENLAFAXINE HYDROCHLORIDE [Suspect]
     Indication: DEPRESSION
     Dosage: 75 mg, daily
     Dates: start: 2002
  2. VENLAFAXINE HYDROCHLORIDE [Suspect]
     Dosage: 150 mg, daily
     Dates: start: 2008
  3. VENLAFAXINE HYDROCHLORIDE [Suspect]
     Dosage: 300 mg, daily
     Dates: start: 201109
  4. MIZOLASTINE [Concomitant]
     Indication: ALLERGIC RHINOCONJUNCTIVITIS
     Dosage: 10 mg/daily
     Dates: start: 200903

REACTIONS (1)
  - Hepatitis cholestatic [Recovered/Resolved]
